FAERS Safety Report 12887342 (Version 1)
Quarter: 2016Q4

REPORT INFORMATION
  Report Type: Spontaneous
  Country: SI (occurrence: SI)
  Receive Date: 20161026
  Receipt Date: 20161026
  Transmission Date: 20170207
  Serious: Yes (Hospitalization)
  Sender: FDA-Public Use
  Company Number: SI-ALLERGAN-1673824US

PATIENT
  Sex: Female

DRUGS (1)
  1. ULIPRISTAL ACETATE - BP [Suspect]
     Active Substance: ULIPRISTAL ACETATE
     Indication: PRODUCT USED FOR UNKNOWN INDICATION
     Dosage: UNK, QD
     Route: 048
     Dates: start: 201607

REACTIONS (2)
  - Hypertension [Recovered/Resolved]
  - Varicose vein [Recovered/Resolved]
